FAERS Safety Report 9527045 (Version 1)
Quarter: 2013Q3

REPORT INFORMATION
  Report Type: Spontaneous
  Country: US (occurrence: US)
  Receive Date: 20130916
  Receipt Date: 20130916
  Transmission Date: 20140515
  Serious: No
  Sender: FDA-Public Use
  Company Number: US-BAXTER-2013BAX018968

PATIENT
  Sex: Female
  Weight: 93.2 kg

DRUGS (2)
  1. DOBUTAMINE HYDROCHLORIDE IN 5% DEXTROSE INJECTION [Suspect]
     Indication: CARDIAC STRESS TEST
     Dosage: STARTED AT 4.9 ML TO A MAX DRUG INFUSION OF 20 ML
     Route: 042
     Dates: start: 20130501, end: 20130501
  2. DOBUTAMINE HYDROCHLORIDE IN 5% DEXTROSE INJECTION [Suspect]
     Indication: OFF LABEL USE

REACTIONS (1)
  - Drug ineffective [Unknown]
